FAERS Safety Report 9478286 (Version 2)
Quarter: 2013Q3

REPORT INFORMATION
  Report Type: Spontaneous
  Country: US (occurrence: US)
  Receive Date: 20130827
  Receipt Date: 20130827
  Transmission Date: 20140515
  Serious: Yes (Hospitalization, Disabling, Other)
  Sender: FDA-Public Use
  Company Number: US-009507513-1110USA01919

PATIENT
  Sex: Female

DRUGS (1)
  1. FOSAMAX [Suspect]
     Dosage: UNK
     Route: 048
     Dates: start: 1995, end: 2009

REACTIONS (5)
  - Femur fracture [Recovering/Resolving]
  - Femur fracture [Recovering/Resolving]
  - Breast cancer [Unknown]
  - Injury [Not Recovered/Not Resolved]
  - Fall [Unknown]
